FAERS Safety Report 23577124 (Version 1)
Quarter: 2024Q1

REPORT INFORMATION
  Report Type: Spontaneous
  Country: US (occurrence: None)
  Receive Date: 20240228
  Receipt Date: 20240228
  Transmission Date: 20240410
  Serious: Yes (unspecified)
  Sender: FDA-Public Use
  Company Number: None

PATIENT
  Age: 45 Year
  Sex: Female
  Weight: 101.25 kg

DRUGS (7)
  1. REMICADE [Suspect]
     Active Substance: INFLIXIMAB
     Dosage: OTHER FREQUENCY : EVERY 8 WEEKS;?
     Route: 042
  2. REMICADE [Concomitant]
     Active Substance: INFLIXIMAB
     Dates: start: 20230531
  3. REMICADE [Concomitant]
     Active Substance: INFLIXIMAB
     Dates: start: 20230615
  4. REMICADE [Concomitant]
     Active Substance: INFLIXIMAB
     Dates: start: 20230807
  5. REMICADE [Concomitant]
     Active Substance: INFLIXIMAB
     Dates: start: 20230922
  6. REMICADE [Concomitant]
     Active Substance: INFLIXIMAB
     Dates: start: 20231110
  7. REMICADE [Concomitant]
     Active Substance: INFLIXIMAB
     Dates: start: 20240118

REACTIONS (1)
  - Papilloedema [None]

NARRATIVE: CASE EVENT DATE: 20240227
